FAERS Safety Report 10779967 (Version 2)
Quarter: 2015Q3

REPORT INFORMATION
  Report Type: Spontaneous
  Country: JO (occurrence: None)
  Receive Date: 20150206
  Receipt Date: 20150701
  Transmission Date: 20151125
  Serious: Yes (Life-Threatening)
  Sender: FDA-Public Use
  Company Number: JO-ACS-000044

PATIENT
  Age: 65 Year
  Sex: Male

DRUGS (1)
  1. CEFTRIAXONE. [Suspect]
     Active Substance: CEFTRIAXONE
     Indication: URINARY TRACT INFECTION
     Dosage: 1X1G  EVERY 1 DAYS(S) IV (NOT OTHERWISE SPECIFIED)
     Route: 042

REACTIONS (13)
  - Arteriospasm coronary [None]
  - Blood pressure decreased [None]
  - Malaise [None]
  - Abdominal pain upper [None]
  - Fall [None]
  - Hypoxia [None]
  - Heart rate decreased [None]
  - Arteriosclerosis coronary artery [None]
  - Somnolence [None]
  - Kounis syndrome [None]
  - Hyperhidrosis [None]
  - Dyspnoea [None]
  - Atrioventricular block [None]
